FAERS Safety Report 6980997-6 (Version None)
Quarter: 2010Q3

REPORT INFORMATION
  Report Type: 
  Country: None (occurrence: None)
  Receive Date: 20100914
  Receipt Date: 20100907
  Transmission Date: 20110219
  Serious: Yes (Hospitalization)
  Sender: FDA-Public Use
  Company Number: B0674197A

PATIENT
  Sex: Male
  Weight: 60 kg

DRUGS (11)
  1. ALKERAN [Suspect]
     Indication: STEM CELL TRANSPLANT
     Dosage: 140MGM2 PER DAY
     Route: 042
     Dates: start: 20100518, end: 20100518
  2. GRAN [Concomitant]
     Route: 058
     Dates: start: 20100525, end: 20100602
  3. PARIET [Concomitant]
     Dosage: 20MG PER DAY
     Route: 048
     Dates: start: 20100515
  4. ALOSITOL [Concomitant]
     Dosage: 300MG PER DAY
     Route: 048
     Dates: start: 20100515
  5. DIFLUCAN [Concomitant]
     Dosage: 100MG PER DAY
     Route: 048
     Dates: start: 20100515, end: 20100604
  6. BACTRAMIN [Concomitant]
     Dosage: 1IUAX PER DAY
     Route: 048
     Dates: start: 20100515, end: 20100604
  7. MUCOSTA [Concomitant]
     Dosage: 300MG PER DAY
     Route: 048
     Dates: start: 20100515, end: 20100604
  8. GRANISETRON HCL [Concomitant]
     Dosage: 3MG PER DAY
     Route: 042
     Dates: start: 20100518, end: 20100520
  9. IMMUNE GLOBULIN INTRAVENOUS (HUMAN) [Concomitant]
     Dosage: 5G PER DAY
     Dates: start: 20100521, end: 20100523
  10. MAXIPIME [Concomitant]
     Dosage: 2G PER DAY
     Route: 042
     Dates: start: 20100526, end: 20100527
  11. MEROPEN [Concomitant]
     Dosage: 2G PER DAY
     Route: 042
     Dates: start: 20100527, end: 20100602

REACTIONS (4)
  - C-REACTIVE PROTEIN INCREASED [None]
  - DIARRHOEA [None]
  - GAMMA-GLUTAMYLTRANSFERASE INCREASED [None]
  - STOMATITIS [None]
